FAERS Safety Report 14991211 (Version 2)
Quarter: 2018Q2

REPORT INFORMATION
  Report Type: Report from Study
  Country: US (occurrence: US)
  Receive Date: 20180608
  Receipt Date: 20180620
  Transmission Date: 20180711
  Serious: Yes (Hospitalization, Other)
  Sender: FDA-Public Use
  Company Number: US-GILEAD-2018-0343321

PATIENT
  Age: 63 Year
  Sex: Female

DRUGS (13)
  1. VITAMIN D                          /00107901/ [Concomitant]
     Active Substance: ERGOCALCIFEROL
  2. ALPRAZOLAM. [Concomitant]
     Active Substance: ALPRAZOLAM
  3. VITAMIN A                          /00056001/ [Concomitant]
     Active Substance: RETINOL
  4. LACTULOSE. [Concomitant]
     Active Substance: LACTULOSE
  5. VITAMIN C [Concomitant]
     Active Substance: ASCORBIC ACID
  6. CELEXA [Concomitant]
     Active Substance: CITALOPRAM HYDROBROMIDE
  7. AMBRISENTAN [Suspect]
     Active Substance: AMBRISENTAN
     Indication: PULMONARY ARTERIAL HYPERTENSION
     Dosage: 10 MG, QD
     Route: 065
     Dates: start: 20100226
  8. SPIRONOLACTONE. [Concomitant]
     Active Substance: SPIRONOLACTONE
  9. POTASSIUM [Concomitant]
     Active Substance: POTASSIUM
  10. VITAMIN B12 [Concomitant]
     Active Substance: CYANOCOBALAMIN
  11. FUROSEMIDE. [Concomitant]
     Active Substance: FUROSEMIDE
  12. VITAMIN E                          /00110501/ [Concomitant]
     Active Substance: TOCOPHEROL
  13. VITAMIN K2                         /00357701/ [Concomitant]
     Active Substance: MENATETRENONE

REACTIONS (4)
  - Fall [Unknown]
  - Coma [Unknown]
  - Loss of consciousness [Unknown]
  - Peripheral swelling [Unknown]
